FAERS Safety Report 12838222 (Version 1)
Quarter: 2016Q4

REPORT INFORMATION
  Report Type: Spontaneous
  Country: IL (occurrence: IL)
  Receive Date: 20161012
  Receipt Date: 20161012
  Transmission Date: 20170207
  Serious: Yes (Death, Hospitalization, Other)
  Sender: FDA-Public Use
  Company Number: PHHY2016IL135822

PATIENT
  Sex: Female

DRUGS (2)
  1. PAZOPANIB [Suspect]
     Active Substance: PAZOPANIB
     Indication: OVARIAN CANCER METASTATIC
     Dosage: 800 MG, UNK
     Route: 065
     Dates: start: 20160921
  2. PNEUMOCOCCAL VACCINE POLYVALENT NOS [Concomitant]
     Active Substance: PNEUMOCOCCAL VACCINE POLYVALENT
     Indication: PRODUCT USED FOR UNKNOWN INDICATION
     Route: 065

REACTIONS (10)
  - Inappropriate schedule of drug administration [Unknown]
  - Condition aggravated [Unknown]
  - Pulmonary oedema [Unknown]
  - Headache [Unknown]
  - Hypotension [Unknown]
  - Death [Fatal]
  - Product use issue [Unknown]
  - Sepsis [Unknown]
  - Asthenia [Unknown]
  - Pyrexia [Unknown]
